FAERS Safety Report 20882678 (Version 2)
Quarter: 2022Q2

REPORT INFORMATION
  Report Type: Spontaneous
  Country: JP (occurrence: JP)
  Receive Date: 20220527
  Receipt Date: 20220610
  Transmission Date: 20220721
  Serious: Yes (Other)
  Sender: FDA-Public Use
  Company Number: JP-TEVA-2022-JP-002201J

PATIENT
  Age: 78 Year
  Sex: Male

DRUGS (1)
  1. LANSOPRAZOLE [Suspect]
     Active Substance: LANSOPRAZOLE
     Indication: Product used for unknown indication
     Dosage: OD TABLET 15MG ^TAKEDA TEVA^
     Route: 048

REACTIONS (1)
  - Pharyngeal cancer [Unknown]
